FAERS Safety Report 8352724-1 (Version None)
Quarter: 2012Q2

REPORT INFORMATION
  Report Type: 
  Country: None (occurrence: None)
  Receive Date: 20120511
  Receipt Date: 20081015
  Transmission Date: 20120825
  Serious: No
  Sender: FDA-Public Use
  Company Number: US-TEVA-2008000325

PATIENT
  Sex: Male
  Weight: 86.26 kg

DRUGS (6)
  1. TREANDA [Suspect]
     Route: 042
     Dates: start: 20080701, end: 20080701
  2. TREANDA [Suspect]
     Indication: CHRONIC LYMPHOCYTIC LEUKAEMIA
     Route: 042
     Dates: start: 20080401, end: 20080401
  3. TREANDA [Suspect]
     Route: 042
     Dates: start: 20080601, end: 20080601
  4. VITAMIN C [Concomitant]
     Route: 048
  5. TREANDA [Suspect]
     Route: 042
     Dates: start: 20080501, end: 20080501
  6. LOVAZA [Concomitant]
     Route: 048

REACTIONS (2)
  - URTICARIA [None]
  - RASH ERYTHEMATOUS [None]
